FAERS Safety Report 19237063 (Version 1)
Quarter: 2021Q2

REPORT INFORMATION
  Report Type: Spontaneous
  Country: US (occurrence: US)
  Receive Date: 20210510
  Receipt Date: 20210510
  Transmission Date: 20210717
  Serious: No
  Sender: FDA-Public Use
  Company Number: US-AUROBINDO-AUR-APL-2020-016898

PATIENT
  Sex: Female

DRUGS (1)
  1. GUAIFENESINANDDEXTROMETHORPHANHYDROBROMIDEEXTENDED?RELEASETABLET (OTC) [Suspect]
     Active Substance: DEXTROMETHORPHAN HYDROBROMIDE\GUAIFENESIN
     Indication: SINUSITIS
     Dosage: UNK
     Route: 065

REACTIONS (3)
  - Wrong technique in product usage process [Unknown]
  - Product size issue [Unknown]
  - Dysphagia [Unknown]
